FAERS Safety Report 11717250 (Version 1)
Quarter: 2015Q4

REPORT INFORMATION
  Report Type: Spontaneous
  Country: US (occurrence: US)
  Receive Date: 20151109
  Receipt Date: 20151109
  Transmission Date: 20160304
  Serious: No
  Sender: FDA-Public Use
  Company Number: US-AMGEN-USASP2015116670

PATIENT
  Age: 72 Year
  Sex: Female

DRUGS (1)
  1. ENBREL [Suspect]
     Active Substance: ETANERCEPT
     Indication: RHEUMATOID ARTHRITIS
     Dosage: UNK UNK, QWK (ONE TIME PER WEEK)
     Route: 065
     Dates: start: 2015

REACTIONS (3)
  - Tooth fracture [Unknown]
  - Tooth disorder [Unknown]
  - Tooth erosion [Unknown]

NARRATIVE: CASE EVENT DATE: 2015
